APPROVED DRUG PRODUCT: HYDROCODONE BITARTRATE AND ACETAMINOPHEN
Active Ingredient: ACETAMINOPHEN; HYDROCODONE BITARTRATE
Strength: 500MG;10MG
Dosage Form/Route: TABLET;ORAL
Application: A040813 | Product #001
Applicant: AMNEAL PHARMACEUTICALS NY LLC
Approved: Feb 23, 2007 | RLD: No | RS: No | Type: DISCN